FAERS Safety Report 10921660 (Version 1)
Quarter: 2015Q1

REPORT INFORMATION
  Report Type: Spontaneous
  Country: FR (occurrence: FR)
  Receive Date: 20150317
  Receipt Date: 20150317
  Transmission Date: 20150721
  Serious: Yes (Other)
  Sender: FDA-Public Use
  Company Number: FR-ABBVIE-15P-056-1333520-00

PATIENT
  Age: 17 Year
  Sex: Female

DRUGS (3)
  1. MICROPAKINE [Suspect]
     Active Substance: VALPROIC ACID
     Route: 048
     Dates: start: 201501
  2. MICROPAKINE [Suspect]
     Active Substance: VALPROIC ACID
     Route: 048
     Dates: start: 2006, end: 201501
  3. MICROPAKINE [Suspect]
     Active Substance: VALPROIC ACID
     Indication: EPILEPSY
     Route: 048
     Dates: start: 2004

REACTIONS (9)
  - Hyperkinesia [Recovering/Resolving]
  - Anticonvulsant drug level abnormal [Unknown]
  - Aggression [Unknown]
  - Enuresis [Not Recovered/Not Resolved]
  - Mental impairment [Unknown]
  - Suicidal ideation [Unknown]
  - Impulsive behaviour [Recovering/Resolving]
  - Tremor [Not Recovered/Not Resolved]
  - Anger [Recovering/Resolving]

NARRATIVE: CASE EVENT DATE: 2014
